FAERS Safety Report 7208407-4 (Version None)
Quarter: 2011Q1

REPORT INFORMATION
  Report Type: 
  Country: None (occurrence: None)
  Receive Date: 20110104
  Receipt Date: 20101222
  Transmission Date: 20110831
  Serious: Yes (Death, Other)
  Sender: FDA-Public Use
  Company Number: IT-ELI_LILLY_AND_COMPANY-IT201012005856

PATIENT
  Age: 55 Year
  Sex: Male

DRUGS (3)
  1. FOLIC ACID [Concomitant]
  2. PEMETREXED [Suspect]
     Indication: LUNG NEOPLASM MALIGNANT
     Dosage: 500 MG/M2, 3/W
     Dates: start: 20090401
  3. VITAMIN B-12 [Concomitant]

REACTIONS (4)
  - VOMITING [None]
  - NAUSEA [None]
  - DEATH [None]
  - NEOPLASM MALIGNANT [None]
